FAERS Safety Report 6050893-X (Version None)
Quarter: 2009Q1

REPORT INFORMATION
  Report Type: 
  Country: None (occurrence: None)
  Receive Date: 20090121
  Receipt Date: 20090113
  Transmission Date: 20090719
  Serious: Yes (Life-Threatening)
  Sender: FDA-Public Use
  Company Number: 2009-189596-NL

PATIENT
  Age: 32 Year
  Sex: Male

DRUGS (4)
  1. DEXAMETHASONE SODIUM PHOSPHATE [Suspect]
     Indication: WITHDRAWAL SYNDROME
     Dosage: MG
  2. HEROIN [Suspect]
     Indication: WITHDRAWAL SYNDROME
     Dosage: DF
  3. ACETYLDIHYDROCODEINE [Suspect]
     Indication: WITHDRAWAL SYNDROME
     Dosage: DF
  4. PHENIRAMINE [Suspect]
     Indication: WITHDRAWAL SYNDROME
     Dosage: DF

REACTIONS (3)
  - CELLULITIS [None]
  - CUSHING'S SYNDROME [None]
  - OFF LABEL USE [None]
